FAERS Safety Report 9068242 (Version 1)
Quarter: 2013Q1

REPORT INFORMATION
  Report Type: Spontaneous
  Country: GB (occurrence: GB)
  Receive Date: 20130128
  Receipt Date: 20130128
  Transmission Date: 20140127
  Serious: Yes (Other)
  Sender: FDA-Public Use
  Company Number: GB-ROCHE-1182965

PATIENT
  Age: 83 Year
  Sex: Female

DRUGS (2)
  1. LUCENTIS [Suspect]
     Indication: AGE-RELATED MACULAR DEGENERATION
     Route: 050
     Dates: start: 20110217
  2. LUCENTIS [Suspect]
     Route: 050
     Dates: start: 20120724, end: 20120724

REACTIONS (4)
  - Corneal epithelium defect [Unknown]
  - Retinitis [Unknown]
  - Ulcerative keratitis [Recovering/Resolving]
  - Iridocyclitis [Recovering/Resolving]
